FAERS Safety Report 4627575-1 (Version None)
Quarter: 2005Q2

REPORT INFORMATION
  Report Type: 
  Country: None (occurrence: None)
  Receive Date: 20050405
  Receipt Date: 20050324
  Transmission Date: 20051028
  Serious: Yes (Other)
  Sender: FDA-Public Use
  Company Number: 2005-01-2312

PATIENT
  Age: 66 Year
  Sex: Female
  Weight: 92.5338 kg

DRUGS (20)
  1. NITRO-DUR [Suspect]
     Indication: CHEST PAIN
     Dosage: TRANSDERMAL
     Route: 062
     Dates: start: 20041101
  2. NITRO-DUR [Suspect]
     Indication: DISCOMFORT
     Dosage: TRANSDERMAL
     Route: 062
     Dates: start: 20041101
  3. NITRO-DUR [Suspect]
  4. ACTOS [Concomitant]
  5. ASPIRIN [Concomitant]
  6. ATENOLOL [Concomitant]
  7. FERROUS SULFATE TAB [Concomitant]
  8. FOLIC ACID [Concomitant]
  9. FOSINOPRIL [Concomitant]
  10. FUROSEMIDE [Concomitant]
  11. GLYBURIDE [Concomitant]
  12. KLOR-CON [Concomitant]
  13. LIPITOR [Concomitant]
  14. MEGESTROL ACETATE [Concomitant]
  15. METFORMIN HCL [Concomitant]
  16. PENTOXIFYLLINE [Concomitant]
  17. PLAVIX [Concomitant]
  18. VITAMIN E [Concomitant]
  19. IPATROPIUM BROMIDE [Concomitant]
  20. TYLENOL (CAPLET) [Concomitant]

REACTIONS (10)
  - APPLICATION SITE DESQUAMATION [None]
  - APPLICATION SITE REACTION [None]
  - BLINDNESS [None]
  - BLOOD BLISTER [None]
  - CHEST PAIN [None]
  - DIABETIC RETINOPATHY [None]
  - DISCOMFORT [None]
  - EYE HAEMORRHAGE [None]
  - PHARMACEUTICAL PRODUCT COMPLAINT [None]
  - URETHRAL CANCER [None]
